FAERS Safety Report 8486318-4 (Version None)
Quarter: 2012Q3

REPORT INFORMATION
  Report Type: 
  Country: None (occurrence: None)
  Receive Date: 20120703
  Receipt Date: 20101124
  Transmission Date: 20120928
  Serious: Yes (Hospitalization)
  Sender: FDA-Public Use
  Company Number: US-GLAXOSMITHKLINE-A0896395A

PATIENT
  Age: 69 Year
  Sex: Male
  Weight: 81.4 kg

DRUGS (1)
  1. PROMACTA [Suspect]
     Indication: PURPURA
     Dosage: 75MG PER DAY
     Route: 048
     Dates: start: 20090914

REACTIONS (4)
  - EOSINOPHIL COUNT INCREASED [None]
  - PLATELET COUNT DECREASED [None]
  - LABORATORY TEST ABNORMAL [None]
  - MONOCYTE COUNT INCREASED [None]
